FAERS Safety Report 16913901 (Version 2)
Quarter: 2019Q4

REPORT INFORMATION
  Report Type: Spontaneous
  Country: NL (occurrence: NL)
  Receive Date: 20191014
  Receipt Date: 20191022
  Transmission Date: 20200122
  Serious: Yes (Death)
  Sender: FDA-Public Use
  Company Number: NL-ELI_LILLY_AND_COMPANY-NL201910004491

PATIENT
  Age: 61 Year
  Sex: Male
  Weight: 80 kg

DRUGS (3)
  1. OLANZAPINE MYLAN [Suspect]
     Active Substance: OLANZAPINE
     Indication: AFFECTIVE DISORDER
     Dosage: 20 MG, DAILY
     Route: 048
     Dates: end: 2019
  2. OLANZAPINE MYLAN [Suspect]
     Active Substance: OLANZAPINE
     Indication: SCHIZOPHRENIA
  3. UNKNOWN PRODUCT [Suspect]
     Active Substance: UNSPECIFIED INGREDIENT
     Indication: PRODUCT USED FOR UNKNOWN INDICATION
     Dosage: UNK, UNKNOWN
     Route: 065

REACTIONS (6)
  - Feeling abnormal [Unknown]
  - Completed suicide [Fatal]
  - Insomnia [Unknown]
  - Hallucination [Unknown]
  - Anxiety [Unknown]
  - Restlessness [Unknown]

NARRATIVE: CASE EVENT DATE: 2019
